FAERS Safety Report 5515759-X (Version None)
Quarter: 2007Q4

REPORT INFORMATION
  Report Type: 
  Country: None (occurrence: None)
  Receive Date: 20071114
  Receipt Date: 20071106
  Transmission Date: 20080405
  Serious: Yes (Death)
  Sender: FDA-Public Use
  Company Number: PHRM2007FR02534

PATIENT
  Age: 32 Year
  Sex: Female

DRUGS (1)
  1. LEPONEX [Suspect]
     Dosage: UNK, UNK
     Route: 048

REACTIONS (3)
  - GASTROINTESTINAL NECROSIS [None]
  - ILEUS PARALYTIC [None]
  - PULMONARY OEDEMA [None]
